FAERS Safety Report 25370674 (Version 1)
Quarter: 2025Q2

REPORT INFORMATION
  Report Type: Spontaneous
  Country: GB (occurrence: GB)
  Receive Date: 20250528
  Receipt Date: 20250528
  Transmission Date: 20250716
  Serious: Yes (Other)
  Sender: INSUD PHARMA
  Company Number: None

PATIENT
  Age: 22 Year
  Sex: Female
  Weight: 51 kg

DRUGS (1)
  1. SLYND [Suspect]
     Active Substance: DROSPIRENONE
     Indication: Contraception
     Dosage: 4 MILLIGRAM, QD
     Dates: start: 20250411

REACTIONS (1)
  - Nipple pain [Not Recovered/Not Resolved]

NARRATIVE: CASE EVENT DATE: 20250425
